FAERS Safety Report 17962165 (Version 3)
Quarter: 2022Q2

REPORT INFORMATION
  Report Type: Spontaneous
  Country: US (occurrence: US)
  Receive Date: 20200630
  Receipt Date: 20220425
  Transmission Date: 20220721
  Serious: No
  Sender: FDA-Public Use
  Company Number: US-PFIZER INC-2020250306

PATIENT
  Age: 83 Year
  Sex: Female

DRUGS (1)
  1. LYRICA [Suspect]
     Active Substance: PREGABALIN
     Indication: Osteoarthritis
     Dosage: 225 MG, 1X/DAY (1 CAPSULE EVERY MORNING TAKE AND TWO CAPSULES EVERY NIGHT AT BEDTIME)
     Route: 048

REACTIONS (3)
  - Off label use [Unknown]
  - Dysphonia [Unknown]
  - Pain in extremity [Unknown]
